FAERS Safety Report 4924887-9 (Version None)
Quarter: 2006Q1

REPORT INFORMATION
  Report Type: 
  Country: None (occurrence: None)
  Receive Date: 20060227
  Receipt Date: 20060126
  Transmission Date: 20060701
  Serious: Yes (Disabling, Other)
  Sender: FDA-Public Use
  Company Number: US-MERCK-0601USA03152

PATIENT
  Age: 47 Year
  Sex: Female
  Weight: 64 kg

DRUGS (4)
  1. FOSAMAX PLUS D [Suspect]
     Indication: OSTEOPENIA
     Route: 048
     Dates: start: 20060122, end: 20060122
  2. ZELNORM [Concomitant]
     Indication: IRRITABLE BOWEL SYNDROME
     Route: 048
     Dates: start: 20040701
  3. CALTRATE [Concomitant]
     Indication: OSTEOPENIA
     Route: 048
     Dates: start: 20050801
  4. LIBRAX CAPSULES [Concomitant]
     Indication: ABDOMINAL PAIN
     Route: 048
     Dates: start: 20040701

REACTIONS (6)
  - ANOREXIA [None]
  - ARTHRALGIA [None]
  - CHEST PAIN [None]
  - FEELING ABNORMAL [None]
  - MALAISE [None]
  - SINUS BRADYCARDIA [None]
